FAERS Safety Report 23607379 (Version 2)
Quarter: 2024Q2

REPORT INFORMATION
  Report Type: Spontaneous
  Country: PL (occurrence: PL)
  Receive Date: 20240307
  Receipt Date: 20240404
  Transmission Date: 20240716
  Serious: Yes (Hospitalization, Other)
  Sender: FDA-Public Use
  Company Number: PL-PFM-2024-01317

PATIENT
  Age: 80 Year
  Sex: Female

DRUGS (3)
  1. DEXAMETHASONE [Suspect]
     Active Substance: DEXAMETHASONE
     Indication: Malignant melanoma
     Route: 065
  2. BINIMETINIB [Suspect]
     Active Substance: BINIMETINIB
     Indication: Malignant melanoma
     Route: 065
     Dates: start: 202202, end: 202302
  3. ENCORAFENIB [Suspect]
     Active Substance: ENCORAFENIB
     Indication: Malignant melanoma
     Route: 065
     Dates: start: 202202, end: 202302

REACTIONS (4)
  - Hepatotoxicity [Recovering/Resolving]
  - Asthenia [Recovered/Resolved]
  - Pain [Unknown]
  - Diarrhoea [Recovered/Resolved]

NARRATIVE: CASE EVENT DATE: 20220601
